FAERS Safety Report 21543530 (Version 3)
Quarter: 2022Q4

REPORT INFORMATION
  Report Type: Report from Study
  Country: CL (occurrence: CL)
  Receive Date: 20221102
  Receipt Date: 20221206
  Transmission Date: 20230112
  Serious: Yes (Hospitalization, Other)
  Sender: FDA-Public Use
  Company Number: CL-BRISTOL-MYERS SQUIBB COMPANY-2022-128756

PATIENT
  Age: 84 Year
  Sex: Female
  Weight: 76 kg

DRUGS (20)
  1. NIVOLUMAB [Suspect]
     Active Substance: NIVOLUMAB
     Indication: Malignant melanoma
     Dosage: PRIOR TO THE EVENT ONSET, THE PATIENT RECEIVED HER MOST RECENT DOSE ON 22-SEP-2022.?ACTION TAKEN: DR
     Route: 042
     Dates: start: 20220728
  2. ISOTONIC GLUCOSALINE SOLUTION [Concomitant]
     Indication: Diarrhoea
     Dosage: ISOTONIC GLUCOSALINE SOLUTION?DOSE: 500 UNITS NOS
     Route: 042
     Dates: start: 20221017, end: 20221017
  3. ISOTONIC GLUCOSALINE SOLUTION [Concomitant]
     Indication: Vomiting
  4. AMLODIPINE [Concomitant]
     Active Substance: AMLODIPINE BESYLATE
     Indication: Product used for unknown indication
     Route: 048
     Dates: start: 2012
  5. OMEPRAZOLE [Concomitant]
     Active Substance: OMEPRAZOLE
     Indication: Diarrhoea
     Route: 042
     Dates: start: 20221017, end: 20221017
  6. OMEPRAZOLE [Concomitant]
     Active Substance: OMEPRAZOLE
     Route: 048
     Dates: start: 20221018
  7. ONDANSETRON [Concomitant]
     Active Substance: ONDANSETRON
     Indication: Diarrhoea
     Route: 042
     Dates: start: 20221017, end: 20221017
  8. ONDANSETRON [Concomitant]
     Active Substance: ONDANSETRON
     Route: 048
     Dates: start: 20221017
  9. DEXAMETHASONE [Concomitant]
     Active Substance: DEXAMETHASONE
     Indication: Diarrhoea
     Route: 042
     Dates: start: 20221017, end: 20221017
  10. PREDNISONE [Concomitant]
     Active Substance: PREDNISONE
     Indication: Diarrhoea
     Route: 042
     Dates: start: 20221018
  11. LOPERAMIDE [Concomitant]
     Active Substance: LOPERAMIDE
     Indication: Diarrhoea
     Route: 048
     Dates: start: 20221017
  12. METAMIZOLE [Concomitant]
     Active Substance: METAMIZOLE
     Indication: Diarrhoea
     Route: 042
     Dates: start: 20221017, end: 20221017
  13. POTASSIUM CHLORIDE [Concomitant]
     Active Substance: POTASSIUM CHLORIDE
     Indication: Blood potassium increased
     Route: 042
     Dates: start: 20221018
  14. CALCIUM GLUCONATE [Concomitant]
     Active Substance: CALCIUM GLUCONATE
     Indication: Blood calcium decreased
     Dosage: DOSE: 1 UNIT NOS
     Route: 042
     Dates: start: 20221018
  15. ATORVASTATIN [Concomitant]
     Active Substance: ATORVASTATIN
     Indication: Product used for unknown indication
     Route: 048
     Dates: start: 2022
  16. METFORMIN [Concomitant]
     Active Substance: METFORMIN HYDROCHLORIDE
     Indication: Product used for unknown indication
     Route: 048
     Dates: start: 2022
  17. ZOPICLONE [Concomitant]
     Active Substance: ZOPICLONE
     Indication: Product used for unknown indication
     Route: 048
     Dates: start: 2010
  18. LEVOTHYROXINE [Concomitant]
     Active Substance: LEVOTHYROXINE
     Indication: Product used for unknown indication
     Route: 048
     Dates: start: 20220915
  19. ACETAMINOPHEN [Concomitant]
     Active Substance: ACETAMINOPHEN
     Indication: Headache
     Route: 048
     Dates: start: 20221006
  20. UREA 10% [Concomitant]
     Indication: Xerosis
     Dosage: UREA 10%?DOSE: 2 UNITS NOS
     Route: 061
     Dates: start: 20220908

REACTIONS (1)
  - Urosepsis [Recovering/Resolving]

NARRATIVE: CASE EVENT DATE: 20221024
